FAERS Safety Report 4487207-2 (Version None)
Quarter: 2004Q4

REPORT INFORMATION
  Report Type: 
  Country: None (occurrence: None)
  Receive Date: 20041022
  Receipt Date: 20041012
  Transmission Date: 20050328
  Serious: No
  Sender: FDA-Public Use
  Company Number: 2004PK01432

PATIENT
  Sex: Female

DRUGS (5)
  1. FASLODEX [Suspect]
     Indication: BREAST CANCER
     Dosage: 250 MG MONTH IM
     Route: 030
     Dates: start: 20040601, end: 20040601
  2. FASLODEX [Suspect]
     Indication: BREAST CANCER
     Dosage: 250 MG MONTH IM
     Route: 030
     Dates: start: 20040629, end: 20040629
  3. FASLODEX [Suspect]
     Indication: BREAST CANCER
     Dosage: 250 MG MONTH IM
     Route: 030
     Dates: start: 20040727, end: 20040727
  4. FASLODEX [Suspect]
     Indication: BREAST CANCER
     Dosage: 250 MG MONTH IM
     Route: 030
     Dates: start: 20040825, end: 20040825
  5. FASLODEX [Suspect]
     Indication: BREAST CANCER
     Dosage: 250 MG MONTH IM
     Route: 030
     Dates: start: 20040629, end: 20040629

REACTIONS (5)
  - BLOOD PRESSURE INCREASED [None]
  - COUGH [None]
  - HOARSENESS [None]
  - PARAESTHESIA [None]
  - VISUAL DISTURBANCE [None]
